FAERS Safety Report 4631651-7 (Version None)
Quarter: 2005Q2

REPORT INFORMATION
  Report Type: 
  Country: None (occurrence: None)
  Receive Date: 20050407
  Receipt Date: 20050323
  Transmission Date: 20051028
  Serious: Yes (Death)
  Sender: FDA-Public Use
  Company Number: 220001M05CAN

PATIENT
  Age: 13 Year
  Sex: Male
  Weight: 36 kg

DRUGS (5)
  1. SAIZEN [Suspect]
     Indication: GROWTH RETARDATION
     Dosage: 0.9 MG, 1 IN 1 DAYS
     Dates: start: 19990719, end: 20050221
  2. HYDROCORTISONE ACETATE [Concomitant]
  3. LEVOTHYROXINE SODIUM [Concomitant]
  4. TESTOSTERONE ENANTATE [Concomitant]
  5. METHYLPHENIDATE HCL [Concomitant]

REACTIONS (2)
  - COMPLETED SUICIDE [None]
  - INJURY ASPHYXIATION [None]
